FAERS Safety Report 17429369 (Version 1)
Quarter: 2020Q1

REPORT INFORMATION
  Report Type: Spontaneous
  Country: US (occurrence: US)
  Receive Date: 20200217
  Receipt Date: 20200217
  Transmission Date: 20200409
  Serious: Yes (Disabling)
  Sender: FDA-Public Use
  Company Number: None

PATIENT
  Age: 26 Year
  Sex: Female
  Weight: 68.04 kg

DRUGS (2)
  1. PARAGARD T 380A [Suspect]
     Active Substance: COPPER
     Dates: start: 20120801, end: 20190709
  2. ALBUTERNOL INHALER [Concomitant]

REACTIONS (8)
  - Acne [None]
  - Hypoglycaemia [None]
  - Supraventricular extrasystoles [None]
  - Panic attack [None]
  - Menstruation irregular [None]
  - Alopecia [None]
  - Ovarian cyst [None]
  - Dysmenorrhoea [None]
